FAERS Safety Report 20407127 (Version 1)
Quarter: 2022Q1

REPORT INFORMATION
  Report Type: Spontaneous
  Country: GB (occurrence: GB)
  Receive Date: 20220131
  Receipt Date: 20220131
  Transmission Date: 20220423
  Serious: Yes (Other)
  Sender: FDA-Public Use
  Company Number: None

PATIENT
  Sex: Male

DRUGS (3)
  1. IBUPROFEN [Suspect]
     Active Substance: IBUPROFEN
     Indication: Product used for unknown indication
     Dosage: UNK
  2. COVID-19 VACCINE NOS [Suspect]
     Active Substance: COVID-19 VACCINE NOS
     Indication: Product used for unknown indication
     Dosage: UNK, DOSE 2
     Dates: start: 20220120, end: 20220120
  3. Covid-19 vaccine [Concomitant]
     Dosage: UNK
     Dates: start: 202111, end: 202111

REACTIONS (3)
  - Pericarditis [Not Recovered/Not Resolved]
  - Chest pain [Unknown]
  - Palpitations [Unknown]

NARRATIVE: CASE EVENT DATE: 20220120
